FAERS Safety Report 5691859-9 (Version None)
Quarter: 2008Q1

REPORT INFORMATION
  Report Type: 
  Country: None (occurrence: None)
  Receive Date: 20080331
  Receipt Date: 20080317
  Transmission Date: 20080703
  Serious: No
  Sender: FDA-Public Use
  Company Number: 000253

PATIENT
  Age: 93 Year
  Sex: Male
  Weight: 46 kg

DRUGS (1)
  1. PLETAAL (CLIOSTAZOL) POWDER [Suspect]
     Indication: ARTERIOSCLEROSIS OBLITERANS
     Dosage: 50 MG, BID ORAL
     Route: 048
     Dates: start: 20080112, end: 20080228

REACTIONS (3)
  - CARDIAC FAILURE [None]
  - OEDEMA PERIPHERAL [None]
  - WEIGHT INCREASED [None]
